FAERS Safety Report 8796332 (Version 1)
Quarter: 2012Q4

REPORT INFORMATION
  Report Type: 
  Country: GB (occurrence: GB)
  Receive Date: 20120919
  Receipt Date: 20120919
  Transmission Date: 20130627
  Serious: Yes (Disabling, Other)
  Sender: FDA-Public Use
  Company Number: GB-WATSON-2012-16166

PATIENT
  Age: 51 Year
  Sex: Male
  Weight: 82.55 kg

DRUGS (3)
  1. OMEPRAZOLE (UNKNOWN) [Suspect]
     Indication: REFLUX GASTRITIS
     Dosage: 1 DF, daily
     Route: 048
     Dates: start: 20100101
  2. GAVISCON                           /00237601/ [Concomitant]
     Indication: PRODUCT USED FOR UNKNOWN INDICATION
     Route: 065
  3. SODIUM BICARBONATE [Concomitant]
     Indication: PRODUCT USED FOR UNKNOWN INDICATION
     Route: 065

REACTIONS (15)
  - Headache [Unknown]
  - Abdominal pain upper [Unknown]
  - Constipation [Unknown]
  - Vomiting [Unknown]
  - Insomnia [Unknown]
  - Dizziness [Unknown]
  - Vertigo [Unknown]
  - Malaise [Unknown]
  - Asthenia [Unknown]
  - Dysgeusia [Unknown]
  - Bronchospasm [Unknown]
  - Dry mouth [Unknown]
  - Myalgia [Unknown]
  - Arthralgia [Unknown]
  - Neck pain [Unknown]
